FAERS Safety Report 7584871-6 (Version None)
Quarter: 2011Q2

REPORT INFORMATION
  Report Type: 
  Country: None (occurrence: None)
  Receive Date: 20110630
  Receipt Date: 20110629
  Transmission Date: 20111010
  Serious: Yes (Death, Hospitalization)
  Sender: FDA-Public Use
  Company Number: PHHY2011CN57633

PATIENT
  Sex: Male

DRUGS (1)
  1. TASIGNA [Suspect]
     Indication: CHRONIC MYELOID LEUKAEMIA
     Dosage: 800 MG, QD
     Dates: start: 20101123

REACTIONS (4)
  - CHRONIC MYELOID LEUKAEMIA [None]
  - INFECTION [None]
  - HAEMORRHAGE [None]
  - NEOPLASM PROGRESSION [None]
